FAERS Safety Report 4806627-7 (Version None)
Quarter: 2005Q4

REPORT INFORMATION
  Report Type: 
  Country: None (occurrence: None)
  Receive Date: 20051019
  Receipt Date: 20051003
  Transmission Date: 20060501
  Serious: Yes (Hospitalization, Other)
  Sender: FDA-Public Use
  Company Number: US_000744932

PATIENT
  Age: 61 Year
  Sex: Female
  Weight: 96 kg

DRUGS (11)
  1. HUMULIN N [Suspect]
     Indication: DIABETES MELLITUS NON-INSULIN-DEPENDENT
  2. HUMULIN R [Suspect]
     Indication: DIABETES MELLITUS
  3. FORTEO [Suspect]
     Indication: OSTEOPOROSIS
     Dosage: 20 UG DAY
     Dates: start: 20040920
  4. PREDNISONE [Concomitant]
  5. GLUCOTROL XL [Concomitant]
  6. CALCIUM WITH VITAMIN D [Concomitant]
  7. MULTI-VITAMIN [Concomitant]
  8. SULAR [Concomitant]
  9. DIOVAN [Concomitant]
  10. TRIAMTERENE [Concomitant]
  11. PREDNISONE [Concomitant]

REACTIONS (17)
  - ARTHROPATHY [None]
  - BLOOD GLUCOSE DECREASED [None]
  - BLOOD GLUCOSE INCREASED [None]
  - BODY HEIGHT DECREASED [None]
  - CARDIAC DISORDER [None]
  - CUSHINGOID [None]
  - DIZZINESS [None]
  - GASTRIC DISORDER [None]
  - HYPERSENSITIVITY [None]
  - MUSCLE SPASMS [None]
  - NORMOCHROMIC NORMOCYTIC ANAEMIA [None]
  - OSTEOPOROSIS [None]
  - PERIARTHRITIS [None]
  - PHARMACEUTICAL PRODUCT COMPLAINT [None]
  - POLYMYALGIA RHEUMATICA [None]
  - THYROID DISORDER [None]
  - WEIGHT INCREASED [None]
